FAERS Safety Report 19630439 (Version 2)
Quarter: 2022Q4

REPORT INFORMATION
  Report Type: Spontaneous
  Country: US (occurrence: US)
  Receive Date: 20210728
  Receipt Date: 20221127
  Transmission Date: 20230113
  Serious: No
  Sender: FDA-Public Use
  Company Number: US-SA-SAC20210722000267

PATIENT
  Age: 21 Year
  Sex: Male

DRUGS (1)
  1. DUPIXENT [Suspect]
     Active Substance: DUPILUMAB
     Dosage: 300 MG FREQUENCY: OTHER
     Route: 058
     Dates: start: 202105

REACTIONS (3)
  - Condition aggravated [Unknown]
  - Stress [Unknown]
  - Injection site pain [Unknown]

NARRATIVE: CASE EVENT DATE: 20210720
